FAERS Safety Report 9775916 (Version 1)
Quarter: 2013Q4

REPORT INFORMATION
  Report Type: Spontaneous
  Country: GB (occurrence: None)
  Receive Date: 20131219
  Receipt Date: 20131219
  Transmission Date: 20140711
  Serious: Yes (Hospitalization)
  Sender: FDA-Public Use
  Company Number: 2013AP010459

PATIENT
  Age: 86 Year
  Sex: Female

DRUGS (5)
  1. RAMIPRIL (RAMIPRIL) [Suspect]
  2. CO-CODAMOL (PANADEINE CO) [Suspect]
     Indication: JOINT INJURY
  3. BENDROFLUMETHIAZIDE (BENDROFLUMETHIAZIDE) [Suspect]
  4. SIMVASTATIN [Concomitant]
  5. ASPIRIN (ACETYLSALICYLIC ACID) [Concomitant]

REACTIONS (15)
  - Constipation [None]
  - Hypophagia [None]
  - Renal failure acute [None]
  - Fall [None]
  - Somnolence [None]
  - Toxicity to various agents [None]
  - Urinary incontinence [None]
  - Condition aggravated [None]
  - Confusional state [None]
  - Somnolence [None]
  - Delirium [None]
  - Cataract [None]
  - Haemoglobin decreased [None]
  - Platelet count decreased [None]
  - Blood potassium increased [None]
